FAERS Safety Report 9281179 (Version 1)
Quarter: 2013Q2

REPORT INFORMATION
  Report Type: Spontaneous
  Country: US (occurrence: None)
  Receive Date: 20130508
  Receipt Date: 20130508
  Transmission Date: 20140414
  Serious: Yes (Other)
  Sender: FDA-Public Use
  Company Number: None

PATIENT
  Age: 62 Year
  Sex: Female
  Weight: 76 kg

DRUGS (9)
  1. INSULIN ASPART [Suspect]
     Indication: HYPERGLYCAEMIA
     Dosage: 1 UNIT /HOUR  CONTINUOUS, IV
     Route: 042
     Dates: start: 20110316, end: 20110317
  2. HEPARIN [Concomitant]
  3. ACETAMINOPHEN [Concomitant]
  4. ALPRAZOLAM [Concomitant]
  5. CEFAZOLIN [Concomitant]
  6. MIDAZOLAM [Concomitant]
  7. MORPHINE [Concomitant]
  8. POTASSIUM CHLORIDE [Concomitant]
  9. RANITIDINE [Concomitant]

REACTIONS (1)
  - Blood glucose decreased [None]
